FAERS Safety Report 4654840-4 (Version None)
Quarter: 2005Q2

REPORT INFORMATION
  Report Type: 
  Country: None (occurrence: None)
  Receive Date: 20050505
  Receipt Date: 20050505
  Transmission Date: 20051028
  Serious: No
  Sender: FDA-Public Use
  Company Number: None

PATIENT
  Age: 50 Year
  Sex: Male
  Weight: 68.4932 kg

DRUGS (2)
  1. ATACAND [Suspect]
  2. DIOVAN [Suspect]

REACTIONS (2)
  - BRONCHITIS [None]
  - PNEUMONIA [None]
